FAERS Safety Report 13683254 (Version 1)
Quarter: 2017Q2

REPORT INFORMATION
  Report Type: Spontaneous
  Country: US (occurrence: US)
  Receive Date: 20170623
  Receipt Date: 20170623
  Transmission Date: 20170830
  Serious: No
  Sender: FDA-Public Use
  Company Number: US-IPSEN BIOPHARMACEUTICALS, INC.-2016-08961

PATIENT
  Age: 54 Year
  Sex: Male

DRUGS (3)
  1. ZINC CITRATE [Concomitant]
     Active Substance: ZINC CITRATE
     Route: 048
  2. DYSPORT [Suspect]
     Active Substance: ABOBOTULINUMTOXINA
     Indication: TORTICOLLIS
     Dosage: 1000 UNITS
     Route: 065
  3. PHYTASE [Concomitant]
     Route: 048

REACTIONS (1)
  - Drug effect decreased [Unknown]
